FAERS Safety Report 14775691 (Version 3)
Quarter: 2018Q4

REPORT INFORMATION
  Report Type: Spontaneous
  Country: US (occurrence: US)
  Receive Date: 20180418
  Receipt Date: 20181211
  Transmission Date: 20190204
  Serious: Yes (Death, Other)
  Sender: FDA-Public Use
  Company Number: US-ASTRAZENECA-2018SE46578

PATIENT
  Sex: Female
  Weight: 78 kg

DRUGS (8)
  1. NEXIUM [Suspect]
     Active Substance: ESOMEPRAZOLE MAGNESIUM
     Indication: GASTROOESOPHAGEAL REFLUX DISEASE
     Route: 048
  2. PRILOSEC [Suspect]
     Active Substance: OMEPRAZOLE MAGNESIUM
     Indication: GASTROOESOPHAGEAL REFLUX DISEASE
     Route: 048
     Dates: start: 2002
  3. ROLAIDS [Concomitant]
     Active Substance: CALCIUM CARBONATE\MAGNESIUM HYDROXIDE
     Dosage: 2 A DAY AS NEEDED
     Route: 065
     Dates: end: 2002
  4. TUMS [Concomitant]
     Active Substance: CALCIUM CARBONATE
     Dosage: 2-4 A DAY AS NEEDED
     Route: 065
     Dates: end: 2002
  5. PRILOSEC OTC [Suspect]
     Active Substance: OMEPRAZOLE MAGNESIUM
     Indication: GASTROOESOPHAGEAL REFLUX DISEASE
     Route: 048
     Dates: end: 20180914
  6. TYLENOL [Concomitant]
     Active Substance: ACETAMINOPHEN
     Indication: HEADACHE
     Dates: start: 2008, end: 20180914
  7. PEPCID AC (OTC) [Concomitant]
     Route: 065
  8. CINNAMON. [Concomitant]
     Active Substance: CINNAMON
     Indication: DIABETES MELLITUS
     Route: 065
     Dates: start: 2008, end: 20180914

REACTIONS (3)
  - Chronic kidney disease [Unknown]
  - End stage renal disease [Fatal]
  - Acute kidney injury [Not Recovered/Not Resolved]
